FAERS Safety Report 9125363 (Version 1)
Quarter: 2013Q1

REPORT INFORMATION
  Report Type: Spontaneous
  Country: US (occurrence: US)
  Receive Date: 20130117
  Receipt Date: 20130117
  Transmission Date: 20140127
  Serious: No
  Sender: FDA-Public Use
  Company Number: US-BRISTOL-MYERS SQUIBB COMPANY-17016619

PATIENT
  Age: 71 Year
  Sex: Male
  Weight: 65.76 kg

DRUGS (1)
  1. YERVOY [Suspect]
     Indication: METASTATIC MALIGNANT MELANOMA
     Dosage: YERVOY 226?DOSE:2ML
     Dates: start: 20120912

REACTIONS (1)
  - Infusion site extravasation [Unknown]
